FAERS Safety Report 23769646 (Version 1)
Quarter: 2024Q2

REPORT INFORMATION
  Report Type: Spontaneous
  Country: AR (occurrence: AR)
  Receive Date: 20240422
  Receipt Date: 20240422
  Transmission Date: 20240716
  Serious: No
  Sender: FDA-Public Use
  Company Number: AR-WT-2024-AR-033642

PATIENT
  Age: 83 Year
  Sex: Male

DRUGS (2)
  1. AVODART [Suspect]
     Active Substance: DUTASTERIDE
     Route: 065
  2. TAMSULOSIN [Suspect]
     Active Substance: TAMSULOSIN
     Route: 065

REACTIONS (6)
  - Dysuria [Unknown]
  - Treatment noncompliance [Unknown]
  - Movement disorder [Unknown]
  - Nocturia [Unknown]
  - Insomnia [Unknown]
  - Gait disturbance [Unknown]
